FAERS Safety Report 10241343 (Version 1)
Quarter: 2014Q2

REPORT INFORMATION
  Report Type: Spontaneous
  Country: US (occurrence: US)
  Receive Date: 20140617
  Receipt Date: 20140617
  Transmission Date: 20141212
  Serious: No
  Sender: FDA-Public Use
  Company Number: US-PFIZER INC-2014161896

PATIENT
  Age: 57 Year
  Sex: Male
  Weight: 67.57 kg

DRUGS (2)
  1. PHENYTOIN [Suspect]
     Indication: CONVULSION
     Dosage: UNK, 4X/DAY
  2. PHENYTOIN [Suspect]
     Dosage: UNK, 1X/DAY

REACTIONS (2)
  - Underdose [Unknown]
  - Drug ineffective [Unknown]
